FAERS Safety Report 6894680 (Version 8)
Quarter: 2012Q4

REPORT INFORMATION
  Report Type: 
  Country: AU (occurrence: AU)
  Receive Date: 20090128
  Receipt Date: 20120927
  Transmission Date: 20130627
  Serious: Yes (Death, Hospitalization, Other)
  Sender: FDA-Public Use
  Company Number: AU-PFIZER INC-2009157049

PATIENT
  Sex: Male

DRUGS (1)
  1. VIAGRA [Suspect]
     Dosage: UNK

REACTIONS (18)
  - Cerebrovascular accident [Fatal]
  - Ruptured cerebral aneurysm [Unknown]
  - Hallucination [Unknown]
  - Convulsion [Unknown]
  - Shunt infection [Unknown]
  - Homicidal ideation [Unknown]
  - Speech disorder [Unknown]
  - Abasia [Unknown]
  - Activities of daily living impaired [Unknown]
  - Mental impairment [Unknown]
  - Amnesia [Unknown]
  - Confusional state [Unknown]
  - Anger [Unknown]
  - Frustration [Unknown]
  - Agitation [Unknown]
  - Aggression [Unknown]
  - Mood swings [Unknown]
  - Incontinence [Unknown]
